FAERS Safety Report 5343870-5 (Version None)
Quarter: 2007Q2

REPORT INFORMATION
  Report Type: 
  Country: None (occurrence: None)
  Receive Date: 20070531
  Receipt Date: 20070522
  Transmission Date: 20071010
  Serious: Yes (Hospitalization, Other)
  Sender: FDA-Public Use
  Company Number: 2007-GWUS-0238

PATIENT
  Age: 48 Year
  Sex: Male
  Weight: 90.7194 kg

DRUGS (2)
  1. ALDARA [Suspect]
     Indication: SKIN PAPILLOMA
     Dosage: TOPICAL
     Route: 061
     Dates: start: 20070515, end: 20070517
  2. EZETIMIBE AND SIMVASTATIN (VYTORIN) [Concomitant]

REACTIONS (14)
  - ALANINE AMINOTRANSFERASE INCREASED [None]
  - ASPARTATE AMINOTRANSFERASE INCREASED [None]
  - BLOOD ALKALINE PHOSPHATASE INCREASED [None]
  - BLOOD GLUCAGON INCREASED [None]
  - CHILLS [None]
  - HEADACHE [None]
  - HEPATIC ENZYME ABNORMAL [None]
  - MYALGIA [None]
  - PARAESTHESIA [None]
  - PROTEINURIA [None]
  - PYREXIA [None]
  - RASH [None]
  - RED BLOOD CELL COUNT DECREASED [None]
  - WHITE BLOOD CELL COUNT DECREASED [None]
